FAERS Safety Report 14453463 (Version 1)
Quarter: 2018Q1

REPORT INFORMATION
  Report Type: Spontaneous
  Country: US (occurrence: US)
  Receive Date: 20180129
  Receipt Date: 20180129
  Transmission Date: 20180509
  Serious: Yes (Hospitalization)
  Sender: FDA-Public Use
  Company Number: US-MIST-TIR-2017-1056

PATIENT
  Age: 52 Year
  Sex: Female
  Weight: 82.63 kg

DRUGS (2)
  1. TIROSINT [Suspect]
     Active Substance: LEVOTHYROXINE SODIUM
     Indication: HYPOTHYROIDISM
     Dosage: ONE 125MCG CAPSULE DAILY
     Route: 048
     Dates: start: 201710, end: 20171105
  2. TIROSINT [Suspect]
     Active Substance: LEVOTHYROXINE SODIUM
     Indication: HYPOTHYROIDISM
     Dosage: ONE 75MCG CAPSULE DAILY
     Route: 048
     Dates: start: 20171106, end: 20171107

REACTIONS (2)
  - Drug level above therapeutic [Unknown]
  - Palpitations [Unknown]

NARRATIVE: CASE EVENT DATE: 20171104
